FAERS Safety Report 8342843-8 (Version None)
Quarter: 2012Q2

REPORT INFORMATION
  Report Type: 
  Country: None (occurrence: None)
  Receive Date: 20120504
  Receipt Date: 20120504
  Transmission Date: 20120825
  Serious: Yes (Hospitalization)
  Sender: FDA-Public Use
  Company Number: None

PATIENT
  Age: 62 Year
  Sex: Male
  Weight: 78.6 kg

DRUGS (8)
  1. ACYCLOVIR [Concomitant]
  2. DILAUDID [Concomitant]
  3. IMODIUM [Concomitant]
  4. VELCADE [Suspect]
     Indication: DIFFUSE LARGE B-CELL LYMPHOMA
     Dosage: 1.6MG/M2, WEEKLY, IV
     Route: 042
     Dates: start: 20111014, end: 20120419
  5. ZOLOFT [Concomitant]
  6. OXYCONTIN [Concomitant]
  7. TEMSIROLIMUS [Suspect]
     Indication: DIFFUSE LARGE B-CELL LYMPHOMA
     Dosage: 15MG; WEEKLY; IV
     Route: 042
     Dates: start: 20111014, end: 20120426
  8. EMEND [Concomitant]

REACTIONS (5)
  - NAUSEA [None]
  - VOMITING [None]
  - INTESTINAL OBSTRUCTION [None]
  - ABDOMINAL PAIN [None]
  - DIARRHOEA [None]
